FAERS Safety Report 25375602 (Version 1)
Quarter: 2025Q2

REPORT INFORMATION
  Report Type: Spontaneous
  Country: US (occurrence: US)
  Receive Date: 20250529
  Receipt Date: 20250529
  Transmission Date: 20250716
  Serious: No
  Sender: SANOFI AVENTIS
  Company Number: US-SA-2025SA150991

PATIENT
  Sex: Male
  Weight: 62.59 kg

DRUGS (9)
  1. NEXVIAZYME [Suspect]
     Active Substance: AVALGLUCOSIDASE ALFA-NGPT
     Indication: Glycogen storage disease type II
     Dosage: 1400 MG, QOW
     Route: 042
  2. EPINEPHRINE [Concomitant]
     Active Substance: EPINEPHRINE
  3. STERILE WATER [Concomitant]
     Active Substance: WATER
  4. AMOXICILLIN [Concomitant]
     Active Substance: AMOXICILLIN
  5. SODIUM CHLORIDE [Concomitant]
     Active Substance: SODIUM CHLORIDE
  6. ALBUTEROL SULFATE [Concomitant]
     Active Substance: ALBUTEROL SULFATE
  7. DEXTROSE [Concomitant]
     Active Substance: DEXTROSE MONOHYDRATE
  8. DIPHENHYDRAMINE HYDROCHLORIDE [Concomitant]
     Active Substance: DIPHENHYDRAMINE HYDROCHLORIDE
  9. CODEINE SULFATE [Concomitant]
     Active Substance: CODEINE SULFATE

REACTIONS (1)
  - Pain [Unknown]
